FAERS Safety Report 4721769-2 (Version None)
Quarter: 2005Q3

REPORT INFORMATION
  Report Type: 
  Country: None (occurrence: None)
  Receive Date: 20050721
  Receipt Date: 20050407
  Transmission Date: 20060218
  Serious: No
  Sender: FDA-Public Use
  Company Number: US-BRISTOL-MYERS SQUIBB COMPANY-12926820

PATIENT
  Age: 77 Year
  Sex: Female

DRUGS (1)
  1. COUMADIN [Suspect]
     Indication: THROMBOSIS
     Route: 048
     Dates: start: 20050301

REACTIONS (8)
  - BACK PAIN [None]
  - DIARRHOEA [None]
  - FATIGUE [None]
  - FLUID RETENTION [None]
  - HEADACHE [None]
  - MEMORY IMPAIRMENT [None]
  - NAUSEA [None]
  - PAIN IN EXTREMITY [None]
